FAERS Safety Report 15858103 (Version 2)
Quarter: 2019Q1

REPORT INFORMATION
  Report Type: Spontaneous
  Country: HU (occurrence: HU)
  Receive Date: 20190123
  Receipt Date: 20190206
  Transmission Date: 20190417
  Serious: Yes (Other)
  Sender: FDA-Public Use
  Company Number: PHHY2019HU009752

PATIENT

DRUGS (10)
  1. CYCLOPHOSPHAMIDE. [Suspect]
     Active Substance: CYCLOPHOSPHAMIDE
     Indication: T-CELL LYMPHOMA
     Dosage: UNK
     Route: 065
  2. HYDROCORTISONE. [Concomitant]
     Active Substance: HYDROCORTISONE
     Indication: T-CELL LYMPHOMA
     Dosage: UNK
     Route: 065
  3. METHOTREXATE. [Suspect]
     Active Substance: METHOTREXATE
     Indication: T-CELL LYMPHOMA
     Dosage: UNK
     Route: 065
  4. IFOSFAMIDE. [Concomitant]
     Active Substance: IFOSFAMIDE
     Indication: T-CELL LYMPHOMA
     Dosage: UNK
     Route: 065
  5. DEXAMETHASONE. [Suspect]
     Active Substance: DEXAMETHASONE
     Indication: T-CELL LYMPHOMA
     Dosage: UNK
     Route: 065
  6. VINBLASTINE [Concomitant]
     Active Substance: VINBLASTINE
     Indication: T-CELL LYMPHOMA
     Dosage: UNK
     Route: 065
  7. FOLINIC ACID [Concomitant]
     Active Substance: LEUCOVORIN
     Indication: T-CELL LYMPHOMA
     Dosage: UNK
     Route: 065
  8. DOXORUBICIN [Suspect]
     Active Substance: DOXORUBICIN
     Indication: T-CELL LYMPHOMA
     Dosage: UNK
     Route: 065
  9. CYTARABINE. [Suspect]
     Active Substance: CYTARABINE
     Indication: T-CELL LYMPHOMA
     Dosage: UNK
     Route: 065
  10. ETOPOSIDE. [Suspect]
     Active Substance: ETOPOSIDE
     Indication: T-CELL LYMPHOMA
     Dosage: UNK
     Route: 065

REACTIONS (2)
  - Osteomyelitis [Unknown]
  - Product use in unapproved indication [Unknown]
